FAERS Safety Report 4910343-0 (Version None)
Quarter: 2006Q1

REPORT INFORMATION
  Report Type: 
  Country: None (occurrence: None)
  Receive Date: 20060213
  Receipt Date: 20050629
  Transmission Date: 20060701
  Serious: Yes (Hospitalization)
  Sender: FDA-Public Use
  Company Number: US-MERCK-0506USA04340

PATIENT
  Age: 50 Year
  Sex: Male

DRUGS (7)
  1. VIOXX [Suspect]
     Indication: ARTHRITIS
     Route: 048
     Dates: end: 20040305
  2. ZANTAC [Concomitant]
     Route: 065
  3. METHOTREXATE [Concomitant]
     Route: 065
  4. PRINCIPEN [Concomitant]
     Route: 065
  5. PREDNISONA SOD. FOS [Concomitant]
     Route: 065
  6. TYLENOL ARTHRITIS EXTENDED RELIEF [Concomitant]
     Route: 065
  7. HUMIRA [Concomitant]
     Route: 065

REACTIONS (18)
  - ARTERIOSCLEROSIS CORONARY ARTERY [None]
  - BARRETT'S OESOPHAGUS [None]
  - BRONCHIECTASIS [None]
  - CORONARY ARTERY THROMBOSIS [None]
  - EMPHYSEMA [None]
  - FLUID OVERLOAD [None]
  - FLUID RETENTION [None]
  - GASTRITIS EROSIVE [None]
  - HIATUS HERNIA [None]
  - ISCHAEMIC CARDIOMYOPATHY [None]
  - LYMPHADENOPATHY MEDIASTINAL [None]
  - MUSCULOSKELETAL CHEST PAIN [None]
  - MYOCARDIAL INFARCTION [None]
  - PLEURAL EFFUSION [None]
  - PNEUMOTHORAX [None]
  - POST PROCEDURAL COMPLICATION [None]
  - REFLUX OESOPHAGITIS [None]
  - WOUND DRAINAGE [None]
